FAERS Safety Report 18706030 (Version 1)
Quarter: 2021Q1

REPORT INFORMATION
  Report Type: Spontaneous
  Country: US (occurrence: US)
  Receive Date: 20210105
  Receipt Date: 20210105
  Transmission Date: 20210419
  Serious: No
  Sender: FDA-Public Use
  Company Number: None

PATIENT
  Age: 79 Year
  Sex: Male

DRUGS (1)
  1. BAMLANIVIMAB (EUA) (BAMLANIVIMAB) (EUA) [Suspect]
     Active Substance: BAMLANIVIMAB\ETESEVIMAB
     Indication: COVID-19
     Route: 042
     Dates: start: 20201214, end: 20201214

REACTIONS (1)
  - Headache [None]

NARRATIVE: CASE EVENT DATE: 20201214
